FAERS Safety Report 5365316-3 (Version None)
Quarter: 2007Q2

REPORT INFORMATION
  Report Type: 
  Country: None (occurrence: None)
  Receive Date: 20070530
  Receipt Date: 20070122
  Transmission Date: 20071010
  Serious: No
  Sender: FDA-Public Use
  Company Number: 2006PV022488

PATIENT
  Age: 63 Year
  Sex: Female
  Weight: 83.9154 kg

DRUGS (13)
  1. BYETTA [Suspect]
     Indication: DIABETES MELLITUS NON-INSULIN-DEPENDENT
     Dosage: SEE IMAGE
     Route: 058
     Dates: start: 20060816, end: 20060915
  2. BYETTA [Suspect]
     Indication: DIABETES MELLITUS NON-INSULIN-DEPENDENT
     Dosage: SEE IMAGE
     Route: 058
     Dates: start: 20060916
  3. GLUCOPHAGE [Concomitant]
  4. AMARY [Concomitant]
  5. LOVENOX [Concomitant]
  6. COUMADIN [Concomitant]
  7. MYLANTA [Concomitant]
  8. ULTRAM [Concomitant]
  9. CELEBREX [Concomitant]
  10. TRAMADOL HCL [Concomitant]
  11. TRAMADOL XR [Concomitant]
  12. LYRICA [Concomitant]
  13. CYMBALTA [Concomitant]

REACTIONS (14)
  - ABDOMINAL DISTENSION [None]
  - APPETITE DISORDER [None]
  - BLOOD GLUCOSE DECREASED [None]
  - BLOOD GLUCOSE INCREASED [None]
  - CONDITION AGGRAVATED [None]
  - CONSTIPATION [None]
  - DIARRHOEA [None]
  - DYSGEUSIA [None]
  - DYSPEPSIA [None]
  - FOOD CRAVING [None]
  - NAUSEA [None]
  - SLEEP DISORDER [None]
  - VOMITING PROJECTILE [None]
  - WEIGHT FLUCTUATION [None]
